FAERS Safety Report 17869765 (Version 7)
Quarter: 2020Q4

REPORT INFORMATION
  Report Type: Report from Study
  Country: US (occurrence: US)
  Receive Date: 20200608
  Receipt Date: 20201210
  Transmission Date: 20210113
  Serious: Yes (Other)
  Sender: FDA-Public Use
  Company Number: US-BIOVITRUM-2020US2054

PATIENT
  Sex: Female

DRUGS (1)
  1. KINERET [Suspect]
     Active Substance: ANAKINRA
     Indication: RHEUMATOID ARTHRITIS
     Route: 058
     Dates: start: 20200410

REACTIONS (14)
  - Injection site erythema [Unknown]
  - Hypoaesthesia [Unknown]
  - Injection site pruritus [Unknown]
  - Illness [Unknown]
  - Sciatica [Unknown]
  - Rheumatoid arthritis [Unknown]
  - Neck pain [Unknown]
  - Injection site rash [Unknown]
  - Intentional product misuse [Unknown]
  - Erythema [Unknown]
  - Localised infection [Unknown]
  - Intervertebral disc degeneration [Unknown]
  - Injection site mass [Unknown]
  - Fungal infection [Unknown]
